FAERS Safety Report 20716258 (Version 1)
Quarter: 2022Q2

REPORT INFORMATION
  Report Type: Spontaneous
  Country: US (occurrence: US)
  Receive Date: 20220416
  Receipt Date: 20220416
  Transmission Date: 20220721
  Serious: No
  Sender: FDA-Public Use
  Company Number: US-ALLERGAN-2202755US

PATIENT
  Sex: Female

DRUGS (3)
  1. LILETTA [Suspect]
     Active Substance: LEVONORGESTREL
     Indication: Heavy menstrual bleeding
     Dosage: 52 MG, SINGLE
     Route: 015
     Dates: start: 20211222, end: 20220119
  2. LILETTA [Suspect]
     Active Substance: LEVONORGESTREL
     Indication: Contraception
  3. VENTOLIN HFA [Concomitant]
     Active Substance: ALBUTEROL SULFATE
     Dosage: 90 MCG AS NEEDED
     Route: 055

REACTIONS (2)
  - Off label use [Unknown]
  - Device expulsion [Recovered/Resolved]
